FAERS Safety Report 20968483 (Version 2)
Quarter: 2022Q4

REPORT INFORMATION
  Report Type: Report from Study
  Country: CA (occurrence: CA)
  Receive Date: 20220616
  Receipt Date: 20221103
  Transmission Date: 20230112
  Serious: Yes (Other)
  Sender: FDA-Public Use
  Company Number: CA-BAUSCH-BL-2022-002105

PATIENT
  Age: 28 Year
  Sex: Male

DRUGS (6)
  1. SILIQ [Suspect]
     Active Substance: BRODALUMAB
     Indication: Psoriasis
     Dosage: 210M/1.5ML, WEEKLY(0,1,2)
     Route: 058
     Dates: start: 20220107, end: 20220121
  2. SILIQ [Suspect]
     Active Substance: BRODALUMAB
     Dosage: 210M/1.5ML, Q 2 WEEKS
     Route: 058
     Dates: end: 20220304
  3. SILIQ [Suspect]
     Active Substance: BRODALUMAB
     Dosage: 210M/1.5ML, Q 2 WEEKS (RESTART)
     Route: 058
     Dates: start: 20220419
  4. SILIQ [Suspect]
     Active Substance: BRODALUMAB
     Dosage: 210M/1.5ML, Q 2 WEEKS
     Route: 058
     Dates: start: 20220503
  5. PFIZER-BIONTECH COVID-19 VACCINE [Concomitant]
     Active Substance: TOZINAMERAN
     Indication: COVID-19 immunisation
     Dosage: 1ST DOSE UNKNOWN
  6. PFIZER-BIONTECH COVID-19 VACCINE [Concomitant]
     Active Substance: TOZINAMERAN
     Dosage: SECOND DOSE
     Dates: start: 20220325, end: 20220325

REACTIONS (6)
  - Syncope [Recovered/Resolved]
  - Stress [Recovered/Resolved]
  - Rash [Not Recovered/Not Resolved]
  - Burning sensation [Unknown]
  - Headache [Unknown]
  - Intentional product use issue [Unknown]

NARRATIVE: CASE EVENT DATE: 20220101
